FAERS Safety Report 8431444-9 (Version None)
Quarter: 2012Q2

REPORT INFORMATION
  Report Type: 
  Country: None (occurrence: None)
  Receive Date: 20120613
  Receipt Date: 20120604
  Transmission Date: 20120825
  Serious: Yes (Other)
  Sender: FDA-Public Use
  Company Number: US-BAYER-201033438NA

PATIENT
  Age: 29 Year
  Sex: Female

DRUGS (9)
  1. TRIPTAN [Concomitant]
  2. TOPAMAX [Concomitant]
     Dosage: UNK
     Route: 048
     Dates: start: 20090605
  3. YASMIN [Suspect]
     Indication: ORAL CONTRACEPTION
     Dosage: UNK UNK, UNK
     Route: 048
     Dates: start: 20090518, end: 20090606
  4. PHENERGAN [Concomitant]
     Dosage: 25 MG, UNK
     Route: 030
     Dates: start: 20090605
  5. PROPRANOLOL [Concomitant]
     Dosage: 20 MG, QD
     Dates: start: 20090609
  6. IMITREX [Concomitant]
  7. TREXIMET [Concomitant]
     Dosage: UNK
     Dates: start: 20090604
  8. YAZ [Suspect]
  9. TORADOL [Concomitant]
     Dosage: 60 MG, UNK
     Route: 030
     Dates: start: 20090605

REACTIONS (6)
  - CEREBROVASCULAR ACCIDENT [None]
  - CEREBRAL INFARCTION [None]
  - VISUAL IMPAIRMENT [None]
  - ASTHENIA [None]
  - MEMORY IMPAIRMENT [None]
  - CONFUSIONAL STATE [None]
